FAERS Safety Report 7383770 (Version 40)
Quarter: 2015Q3

REPORT INFORMATION
  Report Type: Report from Study
  Country: CA (occurrence: CA)
  Receive Date: 20100511
  Receipt Date: 20150710
  Transmission Date: 20151125
  Serious: Yes (Death, Hospitalization, Other)
  Sender: FDA-Public Use
  Company Number: PHHY2009CA35608

PATIENT
  Age: 52 Year
  Sex: Female
  Weight: 58.5 kg

DRUGS (11)
  1. SANDOSTATIN LAR DEPOT [Suspect]
     Active Substance: OCTREOTIDE ACETATE
     Dosage: 20 MG, (QMO) EVERY 4 WEEKS
     Route: 030
     Dates: start: 20090820, end: 20150616
  2. SANDOSTATIN [Suspect]
     Active Substance: OCTREOTIDE ACETATE
     Indication: PANCREATIC CARCINOMA
     Dosage: TEST DOSE
     Route: 058
     Dates: start: 20090727, end: 20090727
  3. POTASSIUM [Concomitant]
     Active Substance: POTASSIUM
     Indication: PRODUCT USED FOR UNKNOWN INDICATION
     Route: 065
  4. PAMIDRONATE [Suspect]
     Active Substance: PAMIDRONATE DISODIUM
     Indication: PRODUCT USED FOR UNKNOWN INDICATION
     Dosage: UNK
     Route: 042
  5. PAMIDRONATE [Suspect]
     Active Substance: PAMIDRONATE DISODIUM
     Dosage: UNK
     Route: 042
     Dates: start: 20140828
  6. EVEROLIMUS [Suspect]
     Active Substance: EVEROLIMUS
     Dosage: 5 MG, QD
     Route: 048
  7. SANDOSTATIN LAR DEPOT [Suspect]
     Active Substance: OCTREOTIDE ACETATE
     Indication: PANCREATIC CARCINOMA
     Dosage: 20 MG, (QMO) EVERY 4 WEEKS
     Route: 030
     Dates: start: 20090727
  8. DIGOXIN. [Concomitant]
     Active Substance: DIGOXIN
     Dosage: 0.625 OT
     Route: 065
  9. EVEROLIMUS [Suspect]
     Active Substance: EVEROLIMUS
     Indication: CHEMOTHERAPY
     Dosage: 10 MG, QD
     Route: 048
  10. LIPITOR [Concomitant]
     Active Substance: ATORVASTATIN CALCIUM
     Indication: PRODUCT USED FOR UNKNOWN INDICATION
     Route: 065
  11. DIGOXIN. [Concomitant]
     Active Substance: DIGOXIN
     Indication: PRODUCT USED FOR UNKNOWN INDICATION
     Dosage: 0.125 OT
     Route: 065

REACTIONS (63)
  - Viral infection [Unknown]
  - Pyrexia [Unknown]
  - Pulmonary embolism [Recovering/Resolving]
  - Urine odour abnormal [Unknown]
  - Infusion site phlebitis [Unknown]
  - Infusion site erythema [Unknown]
  - Oxygen saturation decreased [Unknown]
  - Heart rate increased [Not Recovered/Not Resolved]
  - Metastases to bone [Unknown]
  - Pallor [Unknown]
  - Rales [Unknown]
  - Ascites [Unknown]
  - Death [Fatal]
  - Influenza [Recovered/Resolved]
  - Abdominal pain [Unknown]
  - Supraventricular tachycardia [Unknown]
  - Dysgeusia [Unknown]
  - Weight decreased [Unknown]
  - Generalised oedema [Recovered/Resolved]
  - Pain in extremity [Recovering/Resolving]
  - Muscle spasms [Not Recovered/Not Resolved]
  - General physical health deterioration [Unknown]
  - Hypotension [Unknown]
  - Malaise [Unknown]
  - Chronic kidney disease [Not Recovered/Not Resolved]
  - Cerebral haematoma [Unknown]
  - Haemoglobin decreased [Not Recovered/Not Resolved]
  - Blood pressure diastolic decreased [Unknown]
  - Obstructive airways disorder [Unknown]
  - Decreased appetite [Unknown]
  - Chest discomfort [Recovered/Resolved]
  - Chills [Unknown]
  - Dehydration [Unknown]
  - Sepsis [Unknown]
  - Hepatitis [Unknown]
  - Body temperature decreased [Unknown]
  - Upper limb fracture [Unknown]
  - Escherichia infection [Unknown]
  - Fluid retention [Unknown]
  - Terminal state [Unknown]
  - Malignant neoplasm progression [Unknown]
  - Weight increased [Unknown]
  - Diarrhoea [Unknown]
  - Urinary tract infection [Recovered/Resolved]
  - White blood cell count increased [Unknown]
  - Renal failure [Unknown]
  - Dyspnoea [Not Recovered/Not Resolved]
  - Oedema peripheral [Unknown]
  - Nasopharyngitis [Unknown]
  - Pain [Recovered/Resolved]
  - Abdominal pain lower [Unknown]
  - Pulmonary oedema [Recovered/Resolved]
  - Tachycardia [Unknown]
  - Blood glucose increased [Unknown]
  - Anxiety [Unknown]
  - Blood creatinine increased [Unknown]
  - Lip dry [Unknown]
  - Fall [Unknown]
  - Injection site extravasation [Unknown]
  - Infusion site swelling [Unknown]
  - Vomiting [Unknown]
  - Fatigue [Not Recovered/Not Resolved]
  - Asthenia [Not Recovered/Not Resolved]

NARRATIVE: CASE EVENT DATE: 20090727
